FAERS Safety Report 11322530 (Version 1)
Quarter: 2015Q3

REPORT INFORMATION
  Report Type: Spontaneous
  Country: US (occurrence: US)
  Receive Date: 20150730
  Receipt Date: 20150730
  Transmission Date: 20151125
  Serious: No
  Sender: FDA-Public Use
  Company Number: US-PFIZER INC-2015253114

PATIENT
  Age: 58 Year
  Sex: Male
  Weight: 92 kg

DRUGS (12)
  1. NEXIUM [Concomitant]
     Active Substance: ESOMEPRAZOLE MAGNESIUM
     Indication: GASTROINTESTINAL DISORDER
  2. ASPIRIN. [Concomitant]
     Active Substance: ASPIRIN
     Dosage: 325 MG, IN THE MORNING
  3. GEMFIBROZIL. [Concomitant]
     Active Substance: GEMFIBROZIL
     Dosage: 600 MG, 2X/DAY, ONE IN THE MORNING AND ONE AT NIGHT
  4. CENTURY MATURE MEN?S 50 PLUS [Concomitant]
     Dosage: 1 DF, 1X/DAY IN THE MORNING
     Route: 048
  5. PRAZOSIN [Concomitant]
     Active Substance: PRAZOSIN
     Indication: MICTURITION DISORDER
     Dosage: 1 MG, AT NIGHT
  6. LYRICA [Suspect]
     Active Substance: PREGABALIN
     Indication: NEUROPATHY PERIPHERAL
     Dosage: 200 MG, 3X/DAY, IN THE MORNING, AFTERNOON AND AT NIGHT
     Dates: start: 2010, end: 201507
  7. LYRICA [Suspect]
     Active Substance: PREGABALIN
     Indication: NEURALGIA
  8. LISINOPRIL. [Concomitant]
     Active Substance: LISINOPRIL
     Indication: BLOOD PRESSURE ABNORMAL
     Dosage: 10 MG, 1X/DAY, IN THE MORNING
  9. NEXIUM [Concomitant]
     Active Substance: ESOMEPRAZOLE MAGNESIUM
     Indication: OESOPHAGEAL DISORDER
     Dosage: 40 MG, IN THE MORNING
  10. SIMVASTATIN. [Concomitant]
     Active Substance: SIMVASTATIN
     Dosage: 40 MG, IN THE EVENING
  11. DOXEPIN [Concomitant]
     Active Substance: DOXEPIN
     Indication: IRRITABLE BOWEL SYNDROME
     Dosage: 10 MG, AT NIGHT
  12. METFORMIN [Concomitant]
     Active Substance: METFORMIN HYDROCHLORIDE
     Dosage: 1000 MG, 2X/DAY, ONE IN MORNING AND AT NIGHT

REACTIONS (2)
  - Gait disturbance [Unknown]
  - Drug effect incomplete [Not Recovered/Not Resolved]
